FAERS Safety Report 5196062-7 (Version None)
Quarter: 2007Q1

REPORT INFORMATION
  Report Type: 
  Country: None (occurrence: None)
  Receive Date: 20070102
  Receipt Date: 20061220
  Transmission Date: 20070707
  Serious: Yes (Disabling, Other)
  Sender: FDA-Public Use
  Company Number: US-ELI_LILLY_AND_COMPANY-US200612003838

PATIENT
  Age: 75 Year
  Sex: Female

DRUGS (3)
  1. FORTEO [Suspect]
     Indication: OSTEOPOROSIS
     Dosage: UNK, UNK
     Dates: start: 20051201
  2. VITAMINS NOS [Concomitant]
  3. MOTRIN [Concomitant]
     Dosage: UNK UNK, AS NEEDED

REACTIONS (8)
  - FRACTURE [None]
  - HAND DEFORMITY [None]
  - HIP FRACTURE [None]
  - MULTIPLE FRACTURES [None]
  - PELVIC FRACTURE [None]
  - PHARMACEUTICAL PRODUCT COMPLAINT [None]
  - RHEUMATOID ARTHRITIS [None]
  - SPINAL FRACTURE [None]
